FAERS Safety Report 20823888 (Version 9)
Quarter: 2022Q4

REPORT INFORMATION
  Report Type: Report from Study
  Country: US (occurrence: US)
  Receive Date: 20220513
  Receipt Date: 20221125
  Transmission Date: 20230113
  Serious: Yes (Hospitalization, Other)
  Sender: FDA-Public Use
  Company Number: US-INSMED-2022-00983-USAA

PATIENT
  Sex: Female

DRUGS (11)
  1. ARIKAYCE [Suspect]
     Active Substance: AMIKACIN
     Indication: Mycobacterium avium complex infection
     Dosage: 590 MILLIGRAM, QD
     Route: 055
     Dates: start: 2022, end: 20220405
  2. ARIKAYCE [Suspect]
     Active Substance: AMIKACIN
     Dosage: 590 MILLIGRAM, QD
     Route: 055
     Dates: start: 202204, end: 2022
  3. ARIKAYCE [Suspect]
     Active Substance: AMIKACIN
     Dosage: 590 MILLIGRAM, QD
     Route: 055
     Dates: start: 2022, end: 20220708
  4. ARIKAYCE [Suspect]
     Active Substance: AMIKACIN
     Dosage: 590 MILLIGRAM, QD
     Dates: start: 20220711
  5. METHOTREXATE [Concomitant]
     Active Substance: METHOTREXATE
     Indication: Rheumatoid arthritis
  6. ELIQUIS [Concomitant]
     Active Substance: APIXABAN
     Indication: Atrial fibrillation
  7. SPIRONOLACTONE [Concomitant]
     Active Substance: SPIRONOLACTONE
     Indication: Blood pressure abnormal
     Dosage: 12.5 MILLIGRAM, QD
  8. METOPROLOL [Concomitant]
     Active Substance: METOPROLOL
     Indication: Product used for unknown indication
     Dosage: 25 MILLIGRAM, QD
  9. ATORVASTATIN [Concomitant]
     Active Substance: ATORVASTATIN
     Indication: Product used for unknown indication
     Dosage: 40 MILLIGRAM
  10. LEVOTHYROXINE [Concomitant]
     Active Substance: LEVOTHYROXINE
     Indication: Product used for unknown indication
     Dosage: 25 MICROGRAM
  11. SINGULAIR [Concomitant]
     Active Substance: MONTELUKAST SODIUM
     Indication: Product used for unknown indication
     Dosage: 10 MILLIGRAM

REACTIONS (16)
  - Gait disturbance [Not Recovered/Not Resolved]
  - Hospitalisation [Unknown]
  - Hypotension [Unknown]
  - Complication associated with device [Unknown]
  - Full blood count abnormal [Unknown]
  - Sputum increased [Not Recovered/Not Resolved]
  - Dysphonia [Unknown]
  - Dizziness [Unknown]
  - Ill-defined disorder [Unknown]
  - Cough [Unknown]
  - Fatigue [Unknown]
  - Haemoptysis [Not Recovered/Not Resolved]
  - Therapy interrupted [Unknown]
  - Product dose omission issue [Unknown]
  - Intentional dose omission [Unknown]
  - Product supply issue [Unknown]

NARRATIVE: CASE EVENT DATE: 20220101
